FAERS Safety Report 22217432 (Version 2)
Quarter: 2024Q2

REPORT INFORMATION
  Report Type: Spontaneous
  Country: IN (occurrence: IN)
  Receive Date: 20230417
  Receipt Date: 20240416
  Transmission Date: 20240716
  Serious: No
  Sender: FDA-Public Use
  Company Number: IN-ALKEM LABORATORIES LIMITED-IN-ALKEM-2022-04948

PATIENT
  Age: 18 Year
  Sex: Male

DRUGS (1)
  1. ARIPIPRAZOLE [Suspect]
     Active Substance: ARIPIPRAZOLE
     Indication: Mania
     Dosage: 15 MILLIGRAM, QD
     Route: 048

REACTIONS (1)
  - Obsessive-compulsive disorder [Unknown]
